FAERS Safety Report 5261866-9 (Version None)
Quarter: 2007Q1

REPORT INFORMATION
  Report Type: 
  Country: None (occurrence: None)
  Receive Date: 20070310
  Receipt Date: 20070228
  Transmission Date: 20070707
  Serious: No
  Sender: FDA-Public Use
  Company Number: 2006UW08261

PATIENT
  Sex: Female
  Weight: 69.1 kg

DRUGS (6)
  1. SEROQUEL [Suspect]
     Indication: AFFECTIVE DISORDER
     Route: 048
  2. GEODON [Concomitant]
  3. LITHIUM CARBONATE [Concomitant]
  4. AMBIEN [Concomitant]
  5. DIAZEPAM [Concomitant]
  6. EFFEXOR [Concomitant]

REACTIONS (1)
  - DIABETES MELLITUS [None]
